FAERS Safety Report 8709010 (Version 3)
Quarter: 2012Q4

REPORT INFORMATION
  Report Type: 
  Country: IT (occurrence: IT)
  Receive Date: 20120806
  Receipt Date: 20121026
  Transmission Date: 20130627
  Serious: Yes (Other)
  Sender: FDA-Public Use
  Company Number: IT-PFIZER INC-2012187933

PATIENT
  Age: 66 Year
  Sex: Male

DRUGS (6)
  1. VFEND [Suspect]
     Indication: CANDIDIASIS
     Dosage: 200 mg, 2x/day
     Route: 048
     Dates: start: 20120730, end: 20120731
  2. BISOPROLOL FUMARATE [Concomitant]
  3. LANSOPRAZOLE [Concomitant]
  4. ALLOPURINOL [Concomitant]
  5. CALCIUM CARBONATE [Concomitant]
  6. FERRO-GRAD [Concomitant]

REACTIONS (3)
  - Disorientation [Not Recovered/Not Resolved]
  - Confusional state [Not Recovered/Not Resolved]
  - Hallucinations, mixed [Not Recovered/Not Resolved]
